FAERS Safety Report 8458958-X (Version None)
Quarter: 2012Q2

REPORT INFORMATION
  Report Type: 
  Country: None (occurrence: None)
  Receive Date: 20120622
  Receipt Date: 20120614
  Transmission Date: 20120825
  Serious: Yes (Congenital Anomaly)
  Sender: FDA-Public Use
  Company Number: IE-ROXANE LABORATORIES, INC.-2012-RO-01427RO

PATIENT

DRUGS (1)
  1. METHADONE HCL [Suspect]
     Indication: FOETAL EXPOSURE DURING PREGNANCY
     Route: 064

REACTIONS (1)
  - VENTRICULAR SEPTAL DEFECT [None]
